FAERS Safety Report 4772362-7 (Version None)
Quarter: 2005Q3

REPORT INFORMATION
  Report Type: 
  Country: None (occurrence: None)
  Receive Date: 20050919
  Receipt Date: 20041116
  Transmission Date: 20060218
  Serious: No
  Sender: FDA-Public Use
  Company Number: US-BRISTOL-MYERS SQUIBB COMPANY-12766986

PATIENT
  Age: 31 Year
  Sex: Female
  Weight: 53 kg

DRUGS (1)
  1. KENALOG-40 [Suspect]
     Indication: KELOID SCAR
     Route: 051
     Dates: start: 20041014, end: 20041014

REACTIONS (1)
  - AMENORRHOEA [None]
